FAERS Safety Report 19612742 (Version 1)
Quarter: 2021Q3

REPORT INFORMATION
  Report Type: Spontaneous
  Country: BR (occurrence: BR)
  Receive Date: 20210727
  Receipt Date: 20210727
  Transmission Date: 20211014
  Serious: Yes (Other)
  Sender: FDA-Public Use
  Company Number: BR-CELLTRION INC.-2021BR009854

PATIENT

DRUGS (1)
  1. INFLIXIMAB (UNKNOWN) [Suspect]
     Active Substance: INFLIXIMAB
     Indication: CROHN^S DISEASE
     Dosage: 5 MG/KG

REACTIONS (9)
  - Pulmonary tuberculosis [Recovered/Resolved]
  - Immunosuppression [Recovered/Resolved]
  - Tuberculosis gastrointestinal [Recovered/Resolved]
  - Abdominal pain [Unknown]
  - Pyrexia [Unknown]
  - Weight decreased [Unknown]
  - Diarrhoea [Unknown]
  - Cutaneous tuberculosis [Recovered/Resolved]
  - Condition aggravated [Unknown]
